FAERS Safety Report 4986625-3 (Version None)
Quarter: 2006Q2

REPORT INFORMATION
  Report Type: 
  Country: None (occurrence: None)
  Receive Date: 20060428
  Receipt Date: 20060420
  Transmission Date: 20061013
  Serious: Yes (Hospitalization)
  Sender: FDA-Public Use
  Company Number: US-AVENTIS-200613763US

PATIENT
  Sex: Male

DRUGS (12)
  1. LANTUS [Suspect]
     Indication: DIABETES MELLITUS NON-INSULIN-DEPENDENT
     Dosage: DOSE UNIT: UNITS
     Dates: start: 20000101
  2. OPTICLIK (INSULIN INJECTION PEN) [Suspect]
     Indication: DIABETES MELLITUS NON-INSULIN-DEPENDENT
     Dosage: DOSE: UNKNOWN
     Dates: start: 20050101
  3. HUMALOG [Concomitant]
     Dosage: DOSE: UNKNOWN
  4. IMDUR [Concomitant]
     Dosage: DOSE: UNKNOWN
  5. LOPRESSOR [Concomitant]
     Dosage: DOSE: UNKNOWN
  6. PLENDIL [Concomitant]
     Dosage: DOSE: UNKNOWN
  7. ZOCOR [Concomitant]
     Dosage: DOSE: UNKNOWN
  8. NEURONTIN [Concomitant]
     Dosage: DOSE: UNKNOWN
  9. LASIX [Concomitant]
     Dosage: DOSE: UNKNOWN
  10. DOPAR [Concomitant]
     Dosage: DOSE: UNKNOWN
  11. NITROGLYCERIN [Concomitant]
     Dosage: DOSE: UNKNOWN
  12. ASPIRIN [Concomitant]
     Dosage: DOSE: UNKNOWN

REACTIONS (3)
  - BLOOD GLUCOSE INCREASED [None]
  - HYPERGLYCAEMIA [None]
  - STAPHYLOCOCCAL INFECTION [None]
